FAERS Safety Report 7675321-X (Version None)
Quarter: 2011Q3

REPORT INFORMATION
  Report Type: 
  Country: None (occurrence: None)
  Receive Date: 20110810
  Receipt Date: 20110805
  Transmission Date: 20111222
  Serious: Yes (Death, Hospitalization, Other)
  Sender: FDA-Public Use
  Company Number: US-ABBOTT-11P-163-0843972-00

PATIENT
  Sex: Male
  Weight: 68.1 kg

DRUGS (4)
  1. TRUVADA [Concomitant]
     Indication: HIV INFECTION
     Dates: end: 20110701
  2. NITROGLYCERIN [Concomitant]
     Indication: PRODUCT USED FOR UNKNOWN INDICATION
  3. KALETRA [Suspect]
     Indication: HIV INFECTION
     Dates: end: 20110701
  4. UNKNOWN NEBULIZER MEDICATION [Concomitant]
     Indication: CHRONIC OBSTRUCTIVE PULMONARY DISEASE
     Dates: end: 20110701

REACTIONS (14)
  - RENAL FAILURE [None]
  - CANDIDIASIS [None]
  - UROSEPSIS [None]
  - PNEUMONIA ASPIRATION [None]
  - RASH GENERALISED [None]
  - RESPIRATORY FAILURE [None]
  - DYSPNOEA [None]
  - INFECTION [None]
  - WEANING FAILURE [None]
  - CARDIAC DISORDER [None]
  - ACIDOSIS [None]
  - INTENTIONAL DRUG MISUSE [None]
  - HEART VALVE INCOMPETENCE [None]
  - MYOCARDIAL INFARCTION [None]
